FAERS Safety Report 25081991 (Version 1)
Quarter: 2025Q1

REPORT INFORMATION
  Report Type: Report from Study
  Country: US (occurrence: US)
  Receive Date: 20250317
  Receipt Date: 20250317
  Transmission Date: 20250409
  Serious: Yes (Death, Other)
  Sender: TAKEDA
  Company Number: US-TAKEDA-US202018041

PATIENT
  Sex: Male
  Weight: 80.99 kg

DRUGS (4)
  1. TEDUGLUTIDE [Suspect]
     Active Substance: TEDUGLUTIDE
     Indication: Short-bowel syndrome
     Dosage: 0.5 MILLILITER, QD
  2. TEDUGLUTIDE [Suspect]
     Active Substance: TEDUGLUTIDE
     Dosage: 4.14 MILLIGRAM, QD
  3. TEDUGLUTIDE [Suspect]
     Active Substance: TEDUGLUTIDE
  4. TEDUGLUTIDE [Suspect]
     Active Substance: TEDUGLUTIDE

REACTIONS (11)
  - Death [Fatal]
  - Diarrhoea [Unknown]
  - Balance disorder [Unknown]
  - Dehydration [Unknown]
  - Malaise [Unknown]
  - Prescribed overdose [Unknown]
  - Insurance issue [Unknown]
  - Product availability issue [Unknown]
  - Product use issue [Unknown]
  - Incorrect dose administered [Unknown]
  - Electrolyte imbalance [Unknown]
